FAERS Safety Report 7367997-1 (Version None)
Quarter: 2011Q1

REPORT INFORMATION
  Report Type: 
  Country: None (occurrence: None)
  Receive Date: 20110322
  Receipt Date: 20110302
  Transmission Date: 20110831
  Serious: Yes (Other)
  Sender: FDA-Public Use
  Company Number: US-BAYER-2011-008065

PATIENT
  Sex: Male

DRUGS (9)
  1. ACETYLSALICYLIC ACID SRT [Concomitant]
     Dosage: 5/325 MG
     Dates: start: 19980610
  2. NITROGLYCERIN [Concomitant]
     Indication: PRODUCT USED FOR UNKNOWN INDICATION
     Dosage: UNK
     Dates: start: 19980608
  3. NITROGLYCERIN [Concomitant]
     Indication: CHEST PAIN
     Route: 060
  4. TICLID [Concomitant]
     Dosage: FOR 2 WEEKS
  5. TRASYLOL [Suspect]
     Indication: PRODUCT USED FOR UNKNOWN INDICATION
     Dosage: UNK
     Route: 042
     Dates: start: 20060106
  6. GLYBURIDE [Concomitant]
     Indication: DIABETES MELLITUS
     Dosage: 2.5
     Dates: start: 19980610
  7. HEPARIN [Concomitant]
     Dosage: 10000 U, UNK
     Dates: start: 19980608
  8. HEPARIN [Concomitant]
     Dosage: 1000 U, Q1HR
     Dates: start: 19980608
  9. LOPRESSOR [Concomitant]
     Indication: BLOOD PRESSURE ABNORMAL
     Dosage: 25 MG, BID
     Dates: start: 19980610

REACTIONS (12)
  - RENAL INJURY [None]
  - INJURY [None]
  - FEAR [None]
  - UNEVALUABLE EVENT [None]
  - MULTI-ORGAN FAILURE [None]
  - EMOTIONAL DISTRESS [None]
  - ANHEDONIA [None]
  - RENAL FAILURE [None]
  - RENAL IMPAIRMENT [None]
  - STRESS [None]
  - ANXIETY [None]
  - PAIN [None]
